FAERS Safety Report 11205511 (Version 1)
Quarter: 2015Q2

REPORT INFORMATION
  Report Type: Spontaneous
  Country: US (occurrence: US)
  Receive Date: 20150622
  Receipt Date: 20150622
  Transmission Date: 20150821
  Serious: No
  Sender: FDA-Public Use
  Company Number: US-PFIZER INC-2015204519

PATIENT
  Age: 30 Year
  Sex: Female

DRUGS (1)
  1. MORPHINE SULFATE. [Suspect]
     Active Substance: MORPHINE SULFATE
     Indication: PROCEDURAL PAIN
     Dosage: UNK, AS NEEDED

REACTIONS (4)
  - Vomiting [Unknown]
  - Dyspnoea [Unknown]
  - Urticaria [Unknown]
  - Tachycardia [Unknown]

NARRATIVE: CASE EVENT DATE: 200402
